FAERS Safety Report 8230627-0 (Version None)
Quarter: 2012Q1

REPORT INFORMATION
  Report Type: 
  Country: None (occurrence: None)
  Receive Date: 20120323
  Receipt Date: 20120313
  Transmission Date: 20120608
  Serious: Yes (Other)
  Sender: FDA-Public Use
  Company Number: US-JNJFOC-20120308102

PATIENT
  Sex: Male
  Weight: 72.58 kg

DRUGS (3)
  1. INVEGA SUSTENNA [Suspect]
     Indication: SCHIZOPHRENIA
     Route: 030
     Dates: start: 20110101, end: 20111101
  2. INVEGA SUSTENNA [Suspect]
     Indication: DEPRESSION
     Route: 030
     Dates: start: 20110101, end: 20111101
  3. INVEGA SUSTENNA [Suspect]
     Indication: BIPOLAR DISORDER
     Route: 030
     Dates: start: 20110101, end: 20111101

REACTIONS (3)
  - MEMORY IMPAIRMENT [None]
  - PARALYSIS [None]
  - PARANOIA [None]
